FAERS Safety Report 4535320-3 (Version None)
Quarter: 2004Q4

REPORT INFORMATION
  Report Type: 
  Country: None (occurrence: None)
  Receive Date: 20041214
  Receipt Date: 20040915
  Transmission Date: 20050328
  Serious: No
  Sender: FDA-Public Use
  Company Number: 2004236570US

PATIENT
  Age: 68 Year
  Sex: Male
  Weight: 103.9 kg

DRUGS (4)
  1. BEXTRA [Suspect]
     Indication: JOINT SWELLING
     Dosage: 10 MG, QD, ORAL
     Route: 048
     Dates: start: 20040909
  2. OTHER ANTIHYPERTENSIVES [Concomitant]
  3. PRILOSEC [Concomitant]
  4. VIAGRA [Concomitant]

REACTIONS (7)
  - ANXIETY [None]
  - BLOOD PRESSURE INCREASED [None]
  - ERYTHEMA [None]
  - FATIGUE [None]
  - HYPERHIDROSIS [None]
  - MORBID THOUGHTS [None]
  - TREMOR [None]
